FAERS Safety Report 8370927-7 (Version None)
Quarter: 2012Q2

REPORT INFORMATION
  Report Type: 
  Country: None (occurrence: None)
  Receive Date: 20120518
  Receipt Date: 20120127
  Transmission Date: 20120825
  Serious: No
  Sender: FDA-Public Use
  Company Number: US-BAUSCH-2012BL000654

PATIENT
  Age: 90 Year
  Sex: Male

DRUGS (5)
  1. METOPROLOL TARTRATE [Suspect]
     Indication: HYPERTENSION
  2. DONAZEPRIL [Suspect]
     Indication: HYPERTENSION
  3. IPRATROPIUM BROMIDE [Suspect]
     Indication: RHINORRHOEA
     Route: 045
     Dates: start: 20120112
  4. SPIRONOLACTONE [Concomitant]
  5. LISINOPRIL [Suspect]
     Indication: HYPERTENSION

REACTIONS (1)
  - DIZZINESS [None]
